FAERS Safety Report 7210786-9 (Version None)
Quarter: 2011Q1

REPORT INFORMATION
  Report Type: 
  Country: None (occurrence: None)
  Receive Date: 20110105
  Receipt Date: 20080804
  Transmission Date: 20110831
  Serious: Yes (Death)
  Sender: FDA-Public Use
  Company Number: PHHY2008US37334

PATIENT
  Age: 82 Year
  Sex: Female

DRUGS (1)
  1. TOBI [Suspect]
     Indication: CYSTIC FIBROSIS
     Dosage: 300 MG, Q12H, EVERY 28 DAYS ALTERNATIVELY
     Dates: start: 20080506, end: 20080804

REACTIONS (1)
  - DEATH [None]
